FAERS Safety Report 12832047 (Version 1)
Quarter: 2016Q4

REPORT INFORMATION
  Report Type: Spontaneous
  Country: IT (occurrence: IT)
  Receive Date: 20161010
  Receipt Date: 20161010
  Transmission Date: 20170207
  Serious: Yes (Other)
  Sender: FDA-Public Use
  Company Number: IT-TEVA-697850ACC

PATIENT

DRUGS (1)
  1. DIAZEPAM. [Suspect]
     Active Substance: DIAZEPAM

REACTIONS (2)
  - Atrioventricular block first degree [Unknown]
  - Sinus rhythm [Unknown]
